FAERS Safety Report 5587942-9 (Version None)
Quarter: 2008Q1

REPORT INFORMATION
  Report Type: 
  Country: None (occurrence: None)
  Receive Date: 20080111
  Receipt Date: 20080102
  Transmission Date: 20080703
  Serious: Yes (Other)
  Sender: FDA-Public Use
  Company Number: US-JNJFOC-20080100843

PATIENT
  Sex: Female
  Weight: 107.05 kg

DRUGS (4)
  1. DURAGESIC-100 [Suspect]
     Route: 062
  2. DURAGESIC-100 [Suspect]
     Indication: PAIN
     Route: 062
  3. FENTANYL TRANSDERMAL SYSTEM [Suspect]
     Indication: PAIN
     Route: 062
  4. FENTANYL TRANSDERMAL SYSTEM [Suspect]
     Indication: PAIN
     Route: 062

REACTIONS (18)
  - APPLICATION SITE PRURITUS [None]
  - ARTHRALGIA [None]
  - BEDRIDDEN [None]
  - CONDITION AGGRAVATED [None]
  - DRUG ADMINISTERED AT INAPPROPRIATE SITE [None]
  - DRUG EFFECT DECREASED [None]
  - FEMALE STERILISATION [None]
  - HYPERHIDROSIS [None]
  - HYPERSOMNIA [None]
  - INAPPROPRIATE SCHEDULE OF DRUG ADMINISTRATION [None]
  - INSOMNIA [None]
  - INTRACRANIAL HYPOTENSION [None]
  - PAIN [None]
  - PHARMACEUTICAL PRODUCT COMPLAINT [None]
  - SKIN WARM [None]
  - THORACIC OUTLET SYNDROME [None]
  - URINE ANALYSIS ABNORMAL [None]
  - WRONG TECHNIQUE IN DRUG USAGE PROCESS [None]
